FAERS Safety Report 9742152 (Version 1)
Quarter: 2013Q4

REPORT INFORMATION
  Report Type: Spontaneous
  Country: US (occurrence: US)
  Receive Date: 20131210
  Receipt Date: 20131210
  Transmission Date: 20140711
  Serious: No
  Sender: FDA-Public Use
  Company Number: US-PFIZER INC-2013349204

PATIENT
  Age: 42 Year
  Sex: Male
  Weight: 78.01 kg

DRUGS (3)
  1. VIAGRA [Suspect]
     Indication: ERECTILE DYSFUNCTION
     Dosage: 100 MG, UNK
     Dates: start: 201311
  2. VIAGRA [Suspect]
     Dosage: 100MG 2 OR 3 TIMES A DAY
     Dates: start: 2013
  3. IBUPROFEN [Concomitant]
     Dosage: UNK

REACTIONS (2)
  - Intentional drug misuse [Unknown]
  - Painful erection [Unknown]
